FAERS Safety Report 14795359 (Version 3)
Quarter: 2019Q1

REPORT INFORMATION
  Report Type: Spontaneous
  Country: US (occurrence: US)
  Receive Date: 20180423
  Receipt Date: 20190215
  Transmission Date: 20190417
  Serious: Yes (Other)
  Sender: FDA-Public Use
  Company Number: US-ASTRAZENECA-2018SE52380

PATIENT
  Sex: Female

DRUGS (24)
  1. NEXIUM [Suspect]
     Active Substance: ESOMEPRAZOLE MAGNESIUM
     Route: 048
     Dates: start: 20140311
  2. DEXILANT [Suspect]
     Active Substance: DEXLANSOPRAZOLE
     Route: 048
     Dates: start: 20170816
  3. CYCLOBENZAPRINE HYDROCHLORIDE. [Concomitant]
     Active Substance: CYCLOBENZAPRINE HYDROCHLORIDE
  4. BACLOFEN. [Concomitant]
     Active Substance: BACLOFEN
  5. NEXIUM 24HR [Suspect]
     Active Substance: ESOMEPRAZOLE MAGNESIUM
     Route: 048
  6. PROTONIX [Suspect]
     Active Substance: PANTOPRAZOLE SODIUM
     Route: 048
     Dates: start: 2014
  7. CARAFATE [Concomitant]
     Active Substance: SUCRALFATE
  8. RANITIDINE. [Concomitant]
     Active Substance: RANITIDINE
  9. LYRICA [Concomitant]
     Active Substance: PREGABALIN
  10. NEXIUM [Suspect]
     Active Substance: ESOMEPRAZOLE MAGNESIUM
     Route: 048
     Dates: start: 2014
  11. PREVACID [Suspect]
     Active Substance: LANSOPRAZOLE
     Route: 048
  12. IMDUR [Concomitant]
     Active Substance: ISOSORBIDE MONONITRATE
  13. ATORVASTATIN [Concomitant]
     Active Substance: ATORVASTATIN
  14. PRILOSEC [Suspect]
     Active Substance: OMEPRAZOLE MAGNESIUM
     Route: 048
  15. DEXILANT [Suspect]
     Active Substance: DEXLANSOPRAZOLE
     Route: 048
  16. ARICEPT [Concomitant]
     Active Substance: DONEPEZIL HYDROCHLORIDE
  17. TERAZOSIN [Concomitant]
     Active Substance: TERAZOSIN\TERAZOSIN HYDROCHLORIDE
  18. FLEXERIL [Concomitant]
     Active Substance: CYCLOBENZAPRINE HYDROCHLORIDE
  19. TOPROL XL [Concomitant]
     Active Substance: METOPROLOL SUCCINATE
  20. PRILOSEC OTC [Suspect]
     Active Substance: OMEPRAZOLE MAGNESIUM
     Route: 048
  21. CLOPIDOGREL [Concomitant]
     Active Substance: CLOPIDOGREL BISULFATE
  22. FERREX [Concomitant]
     Active Substance: FERRIC POLYSACCHARIDE COMPLEX
  23. ACIPHEX [Suspect]
     Active Substance: RABEPRAZOLE SODIUM
     Route: 048
  24. TOPIRAMATE. [Concomitant]
     Active Substance: TOPIRAMATE

REACTIONS (5)
  - Chronic kidney disease [Unknown]
  - End stage renal disease [Unknown]
  - Acute kidney injury [Unknown]
  - Tubulointerstitial nephritis [Unknown]
  - Renal failure [Unknown]
